FAERS Safety Report 6346351-5 (Version None)
Quarter: 2009Q3

REPORT INFORMATION
  Report Type: 
  Country: None (occurrence: None)
  Receive Date: 20090909
  Receipt Date: 20090902
  Transmission Date: 20100115
  Serious: Yes (Other)
  Sender: FDA-Public Use
  Company Number: US-BAYER-200913755BCC

PATIENT
  Sex: Female

DRUGS (1)
  1. ASPIRIN [Suspect]
     Indication: DRUG USE FOR UNKNOWN INDICATION
     Dosage: CONSUMER TOOK BAYER ASPIRIN ABOUT 30 YEARS PREVIOUS TO THE REPORT
     Route: 065

REACTIONS (1)
  - GASTRIC HAEMORRHAGE [None]
